FAERS Safety Report 15129786 (Version 2)
Quarter: 2018Q3

REPORT INFORMATION
  Report Type: Spontaneous
  Country: TR (occurrence: TR)
  Receive Date: 20180711
  Receipt Date: 20180731
  Transmission Date: 20181010
  Serious: Yes (Hospitalization, Other)
  Sender: FDA-Public Use
  Company Number: TR-B.I. PHARMACEUTICALS,INC./RIDGEFIELD-2018-BI-034756

PATIENT
  Age: 63 Year
  Sex: Male

DRUGS (1)
  1. TRAJENTA [Suspect]
     Active Substance: LINAGLIPTIN
     Indication: TYPE 2 DIABETES MELLITUS
     Route: 048
     Dates: start: 20180621, end: 20180625

REACTIONS (3)
  - Bile duct obstruction [Recovering/Resolving]
  - Pancreatitis [Unknown]
  - Cholecystitis [Recovering/Resolving]

NARRATIVE: CASE EVENT DATE: 20180624
